FAERS Safety Report 9511967 (Version 1)
Quarter: 2013Q1

REPORT INFORMATION
  Report Type: Spontaneous
  Country: US (occurrence: None)
  Receive Date: 20130305
  Receipt Date: 20130305
  Transmission Date: 20140127
  Serious: Yes (Other)
  Sender: FDA-Public Use
  Company Number: 163-21880-12010053

PATIENT
  Age: 66 Year
  Sex: Male

DRUGS (10)
  1. REVLIMID [Suspect]
     Indication: PLASMA CELL MYELOMA
     Route: 048
     Dates: start: 20111203
  2. ASPIRIN (ACETYLSALICYLIC ACID) [Concomitant]
  3. BENICAR (OLMESARTAN MEDOXOMIL) [Concomitant]
  4. DEXAMETHASONE (DEXAMETHASONE) [Concomitant]
  5. FEXOFENADINE [Concomitant]
  6. FOLIC ACID (FOLIC ACID) [Concomitant]
  7. GLIPIZIDE (GLIPIZIDE) [Concomitant]
  8. HYDROCODONE (HYDROCODONE) [Concomitant]
  9. PERCOCET (OXYCOCET) [Concomitant]
  10. SIMVASTIN (SIMVASTATIN) [Concomitant]

REACTIONS (1)
  - Blood pressure decreased [None]
